FAERS Safety Report 6572500-X (Version None)
Quarter: 2010Q1

REPORT INFORMATION
  Report Type: 
  Country: None (occurrence: None)
  Receive Date: 20100205
  Receipt Date: 20100127
  Transmission Date: 20100710
  Serious: Yes (Other)
  Sender: FDA-Public Use
  Company Number: US-PFIZER INC-2010013048

PATIENT
  Sex: Male
  Weight: 81.633 kg

DRUGS (6)
  1. LIPITOR [Suspect]
     Indication: BLOOD CHOLESTEROL INCREASED
     Dosage: 80 MG, 1X/DAY
     Route: 048
     Dates: start: 20020101
  2. XANAX [Suspect]
     Indication: ANXIETY
     Dosage: FREQUENCY: 2X/DAY,
     Route: 048
     Dates: start: 20040101
  3. ACETYLSALICYLIC ACID [Suspect]
     Indication: CARDIAC DISORDER
     Dosage: 81 MG, UNK
     Route: 048
  4. LOPRESSOR [Suspect]
     Dosage: 25 MG, 2X/DAY
     Route: 048
     Dates: start: 20040101
  5. RAMIPRIL [Concomitant]
     Indication: HYPERTENSION
     Dosage: 50 MG, 1X/DAY
     Route: 048
     Dates: start: 20020101
  6. TRICOR [Concomitant]
     Indication: BLOOD CHOLESTEROL INCREASED
     Dosage: 145 MG, 1X/DAY
     Route: 048
     Dates: start: 20020101

REACTIONS (7)
  - ACCIDENT AT WORK [None]
  - BACK INJURY [None]
  - CARDIAC OPERATION [None]
  - ENZYME ABNORMALITY [None]
  - GASTRIC DISORDER [None]
  - MYOCARDIAL INFARCTION [None]
  - NAUSEA [None]
